FAERS Safety Report 14836026 (Version 1)
Quarter: 2018Q2

REPORT INFORMATION
  Report Type: Spontaneous
  Country: US (occurrence: US)
  Receive Date: 20180413
  Receipt Date: 20180413
  Transmission Date: 20180711
  Serious: Yes (Hospitalization, Disabling)
  Sender: FDA-Public Use
  Company Number: None

PATIENT
  Age: 20 Year
  Sex: Male
  Weight: 79.38 kg

DRUGS (9)
  1. MIDOL [Concomitant]
     Active Substance: IBUPROFEN
  2. MELATONIN [Concomitant]
     Active Substance: MELATONIN
  3. HALLS [Concomitant]
     Active Substance: MENTHOL
  4. TUMS [Concomitant]
     Active Substance: CALCIUM CARBONATE
  5. NUVARING [Suspect]
     Active Substance: ETHINYL ESTRADIOL\ETONOGESTREL
     Indication: CONTRACEPTION
     Dosage: ?          QUANTITY:1 MG MILLIGRAM(S);?
     Route: 067
     Dates: start: 20160430, end: 20180413
  6. TYLENOL [Concomitant]
     Active Substance: ACETAMINOPHEN
  7. GRAVOL [Concomitant]
     Active Substance: DIMENHYDRINATE
  8. IMODIUM [Concomitant]
     Active Substance: LOPERAMIDE HYDROCHLORIDE
  9. REACTIN [Concomitant]
     Active Substance: DICLOFENAC SODIUM

REACTIONS (1)
  - Cholelithiasis [None]

NARRATIVE: CASE EVENT DATE: 20170420
